FAERS Safety Report 25358600 (Version 1)
Quarter: 2025Q2

REPORT INFORMATION
  Report Type: Spontaneous
  Country: KR (occurrence: KR)
  Receive Date: 20250526
  Receipt Date: 20250526
  Transmission Date: 20250716
  Serious: Yes (Death)
  Sender: JOHNSON AND JOHNSON
  Company Number: KR-JNJFOC-20250527930

PATIENT
  Sex: Male

DRUGS (1)
  1. BALVERSA [Suspect]
     Active Substance: ERDAFITINIB
     Indication: Product used for unknown indication
     Route: 048

REACTIONS (1)
  - Death [Fatal]
